FAERS Safety Report 8835514 (Version 1)
Quarter: 2012Q4

REPORT INFORMATION
  Report Type: 
  Country: GR (occurrence: GR)
  Receive Date: 20121011
  Receipt Date: 20121011
  Transmission Date: 20130627
  Serious: Yes (Death, Life-Threatening, Hospitalization)
  Sender: FDA-Public Use
  Company Number: GR-PFIZER INC-HQWYE914529SEP03

PATIENT
  Age: 43 Year
  Sex: Male
  Weight: 110 kg

DRUGS (4)
  1. TAZOCIN [Suspect]
     Indication: RESPIRATORY TRACT INFECTION
     Dosage: 4.5 g, 3x/day
     Route: 042
     Dates: start: 20030611, end: 20030624
  2. TAZOCIN [Suspect]
     Indication: ACQUIRED IMMUNODEFICIENCY SYNDROME
  3. SULFAMETHOXAZOLE/TRIMETHOPRIM [Suspect]
     Indication: PNEUMOCYSTIS JIROVECI PNEUMONIA
     Dosage: 480 mg, 1x/day
     Route: 030
     Dates: start: 20030620, end: 20030624
  4. SULFAMETHOXAZOLE/TRIMETHOPRIM [Suspect]
     Indication: ACQUIRED IMMUNODEFICIENCY SYNDROME

REACTIONS (2)
  - Toxic epidermal necrolysis [Fatal]
  - Disseminated intravascular coagulation [Fatal]
